FAERS Safety Report 8227313-X (Version None)
Quarter: 2012Q1

REPORT INFORMATION
  Report Type: 
  Country: None (occurrence: None)
  Receive Date: 20120322
  Receipt Date: 20120316
  Transmission Date: 20120608
  Serious: Yes (Other)
  Sender: FDA-Public Use
  Company Number: PHHY2012FI024137

PATIENT
  Sex: Male

DRUGS (3)
  1. CLOZAPINE [Suspect]
     Dosage: 300 MG, DAILY
     Route: 048
  2. CLOZAPINE [Suspect]
     Dosage: 500 MG, DAILY
     Route: 048
  3. ABILIFY [Concomitant]

REACTIONS (3)
  - RESTLESSNESS [None]
  - DYSKINESIA [None]
  - OBSESSIVE-COMPULSIVE DISORDER [None]
